FAERS Safety Report 5057273-4 (Version None)
Quarter: 2006Q3

REPORT INFORMATION
  Report Type: 
  Country: None (occurrence: None)
  Receive Date: 20060721
  Receipt Date: 20050713
  Transmission Date: 20061208
  Serious: No
  Sender: FDA-Public Use
  Company Number: US-GLAXOSMITHKLINE-A0566129A

PATIENT
  Age: 86 Year
  Sex: Female

DRUGS (6)
  1. AVANDIA [Suspect]
     Dosage: 4MG PER DAY
     Route: 048
     Dates: start: 20050501
  2. MICRONASE [Concomitant]
  3. VASOTEC [Concomitant]
  4. GLYBURIDE [Concomitant]
  5. HCT [Concomitant]
  6. ATENOLOL [Concomitant]

REACTIONS (1)
  - OEDEMA [None]
